FAERS Safety Report 9236019 (Version 1)
Quarter: 2013Q2

REPORT INFORMATION
  Report Type: Report from Study
  Country: CA (occurrence: CA)
  Receive Date: 20130417
  Receipt Date: 20130417
  Transmission Date: 20140414
  Serious: Yes (Other)
  Sender: FDA-Public Use
  Company Number: CA-JNJFOC-20130406287

PATIENT
  Age: 60 Year
  Sex: Female
  Weight: 80.74 kg

DRUGS (1)
  1. REMICADE [Suspect]
     Indication: CROHN^S DISEASE
     Route: 042
     Dates: start: 20100201, end: 20121203

REACTIONS (2)
  - Intestinal fistula [Unknown]
  - Cholelithiasis [Unknown]
